FAERS Safety Report 6867026-X (Version None)
Quarter: 2010Q2

REPORT INFORMATION
  Report Type: 
  Country: None (occurrence: None)
  Receive Date: 20100528
  Receipt Date: 20100419
  Transmission Date: 20101027
  Serious: No
  Sender: FDA-Public Use
  Company Number: 2009271237

PATIENT
  Age: 79 Year
  Sex: Female
  Weight: 72 kg

DRUGS (10)
  1. TOVIAZ [Suspect]
     Indication: POLLAKIURIA
     Dosage: 4 MG, 1X/DAY
     Dates: start: 20091202
  2. OXYBUTYNIN CHLORIDE [Suspect]
     Indication: POLLAKIURIA
     Dosage: 30 MG
     Dates: start: 20091202
  3. METFORMIN HCL [Concomitant]
  4. LOVASTATIN [Concomitant]
  5. GALENIC /CALCIUM/VITAMIN D/ (CALCIUM, VITAMIN D NOS) [Concomitant]
  6. VALIUM [Concomitant]
  7. OMEGA-3 TRIGLYCERIDES (OMEGA-3 TRIGLYCERIDES) [Concomitant]
  8. LYCOPENE (LYCOPENE) [Concomitant]
  9. MULTIVITAMINS (ASCORBIC ACID, ERGOCALCIFEROL, FOLIC ACID, NICOTINAMIDE [Concomitant]
  10. VICODIN [Concomitant]

REACTIONS (3)
  - DECREASED APPETITE [None]
  - DRUG INEFFECTIVE [None]
  - SOMNOLENCE [None]
